FAERS Safety Report 10145168 (Version 1)
Quarter: 2014Q2

REPORT INFORMATION
  Report Type: Spontaneous
  Country: FR (occurrence: FR)
  Receive Date: 20140501
  Receipt Date: 20140501
  Transmission Date: 20141212
  Serious: Yes (Other)
  Sender: FDA-Public Use
  Company Number: FR-ROCHE-1393126

PATIENT
  Age: 63 Year
  Sex: Male

DRUGS (9)
  1. VEMURAFENIB [Suspect]
     Indication: METASTATIC MALIGNANT MELANOMA
     Route: 065
     Dates: start: 201206
  2. VEMURAFENIB [Suspect]
     Dosage: (25% REDUCTION)
     Route: 065
  3. VEMURAFENIB [Suspect]
     Dosage: PERINDOPRIL AND VEMURAFENIB WERE STOPPED.
     Route: 065
  4. VEMURAFENIB [Suspect]
     Dosage: VEMURAFENIB THERAPY WAS REINTRODUCED AT A 50% DECREASED DOSAGE (480 MG TWICE DAILY).
     Route: 065
  5. ZOLEDRONIC ACID [Suspect]
     Indication: METASTATIC MALIGNANT MELANOMA
     Dosage: DRUG STOPPED DUE TO RENAL DYSFUNCTION
     Route: 065
  6. PERINDOPRIL [Concomitant]
     Indication: HYPERTENSION
     Route: 065
  7. PRAVASTATIN [Concomitant]
     Indication: HYPERCHOLESTEROLAEMIA
     Route: 065
  8. DACARBAZINE [Concomitant]
     Indication: METASTATIC MALIGNANT MELANOMA
     Route: 065
  9. LYSINE ACETYLSALICYLATE [Concomitant]
     Indication: HYPERTENSION
     Route: 065

REACTIONS (8)
  - Squamous cell carcinoma of skin [Recovered/Resolved]
  - Decreased appetite [Recovered/Resolved]
  - Renal failure acute [Not Recovered/Not Resolved]
  - Proteinuria [Recovered/Resolved]
  - Arthralgia [Recovered/Resolved]
  - Pruritus [Recovered/Resolved]
  - Thrombocytopenia [Recovered/Resolved]
  - Cholestasis [Recovered/Resolved]
